FAERS Safety Report 16598431 (Version 1)
Quarter: 2019Q3

REPORT INFORMATION
  Report Type: Spontaneous
  Country: US (occurrence: US)
  Receive Date: 20190719
  Receipt Date: 20190719
  Transmission Date: 20191004
  Serious: No
  Sender: FDA-Public Use
  Company Number: US-SEPTODONT-201804813

PATIENT
  Sex: Male

DRUGS (1)
  1. 5% LIDOCAINE OINTMENT [Suspect]
     Active Substance: LIDOCAINE
     Indication: PRODUCT USE IN UNAPPROVED INDICATION
     Dosage: A ^COUPLE OF SQUEEZES^ 3 TIMES A DAY ON HIS BACK AND UNDER HIS LEFT ARM
     Route: 003

REACTIONS (2)
  - Off label use [Unknown]
  - Drug ineffective [Not Recovered/Not Resolved]
